APPROVED DRUG PRODUCT: CEFUROXIME SODIUM
Active Ingredient: CEFUROXIME SODIUM
Strength: EQ 7.5GM BASE/VIAL
Dosage Form/Route: INJECTABLE;INJECTION
Application: A064036 | Product #001
Applicant: WATSON LABORATORIES INC
Approved: Feb 26, 1993 | RLD: No | RS: No | Type: DISCN